FAERS Safety Report 6477484-0 (Version None)
Quarter: 2009Q4

REPORT INFORMATION
  Report Type: 
  Country: None (occurrence: None)
  Receive Date: 20091207
  Receipt Date: 20091124
  Transmission Date: 20100525
  Serious: Yes (Other)
  Sender: FDA-Public Use
  Company Number: DE-SANOFI-AVENTIS-2009SA004652

PATIENT
  Sex: Female

DRUGS (2)
  1. LANTUS [Suspect]
     Indication: DIABETES MELLITUS
     Route: 065
     Dates: start: 20080101, end: 20091001
  2. LANTUS [Suspect]
     Route: 065
     Dates: start: 20091101

REACTIONS (4)
  - ANXIETY [None]
  - PANIC ATTACK [None]
  - RESTLESSNESS [None]
  - TREMOR [None]
